FAERS Safety Report 10385872 (Version 2)
Quarter: 2014Q3

REPORT INFORMATION
  Report Type: Spontaneous
  Country: US (occurrence: US)
  Receive Date: 20140814
  Receipt Date: 20140828
  Transmission Date: 20150326
  Serious: No
  Sender: FDA-Public Use
  Company Number: US-009507513-1408USA008185

PATIENT
  Sex: Female

DRUGS (1)
  1. CLARITIN [Suspect]
     Active Substance: LORATADINE
     Indication: HYPERSENSITIVITY
     Dosage: 5 MG, QD
     Route: 048
     Dates: start: 201406, end: 201408

REACTIONS (3)
  - Product package associated injury [Not Recovered/Not Resolved]
  - Pain in extremity [Unknown]
  - Onychoclasis [Unknown]

NARRATIVE: CASE EVENT DATE: 2014
